FAERS Safety Report 24570832 (Version 1)
Quarter: 2024Q4

REPORT INFORMATION
  Report Type: Spontaneous
  Country: SE (occurrence: SE)
  Receive Date: 20241101
  Receipt Date: 20241101
  Transmission Date: 20250115
  Serious: Yes (Other)
  Sender: BRISTOL-MYERS SQUIBB COMPANY
  Company Number: None

PATIENT
  Age: 68 Year
  Sex: Female

DRUGS (2)
  1. LENALIDOMIDE [Suspect]
     Active Substance: LENALIDOMIDE
     Indication: Plasma cell myeloma
     Dosage: 1X1 DAY 1-21 (28 D CYK)
     Route: 048
     Dates: end: 20241007
  2. PAMIDRONATE DISODIUM [Concomitant]
     Active Substance: PAMIDRONATE DISODIUM
     Indication: Product used for unknown indication

REACTIONS (4)
  - Abdominal pain lower [Recovered/Resolved]
  - Faeces discoloured [Recovered/Resolved]
  - Diarrhoea [Not Recovered/Not Resolved]
  - Gastrooesophageal reflux disease [Unknown]

NARRATIVE: CASE EVENT DATE: 20230501
